FAERS Safety Report 15763021 (Version 2)
Quarter: 2022Q1

REPORT INFORMATION
  Report Type: Spontaneous
  Country: US (occurrence: US)
  Receive Date: 20181226
  Receipt Date: 20220217
  Transmission Date: 20220424
  Serious: Yes (Other)
  Sender: FDA-Public Use
  Company Number: US-MYLANLABS-2018M1094767

PATIENT
  Age: 45 Year
  Sex: Female

DRUGS (5)
  1. LEVOTHYROXINE [Suspect]
     Active Substance: LEVOTHYROXINE
     Indication: Thyroid hormone replacement therapy
     Dosage: INTRAVENOUS INFUSION
     Route: 042
  2. LEVOTHYROXINE [Suspect]
     Active Substance: LEVOTHYROXINE
     Indication: Thyroid hormone replacement therapy
     Dosage: RECEIVED GENERIC LEVOTHYROXINE-SODIUM
     Route: 048
  3. ARMOUR THYROID [Suspect]
     Active Substance: THYROID, PORCINE
     Indication: Thyroid hormone replacement therapy
     Dosage: UNK
     Route: 048
  4. CYTOMEL [Suspect]
     Active Substance: LIOTHYRONINE SODIUM
     Indication: Thyroid hormone replacement therapy
     Route: 048
  5. SYNTHROID [Suspect]
     Active Substance: LEVOTHYROXINE SODIUM
     Indication: Thyroid hormone replacement therapy
     Dosage: UNK
     Route: 048

REACTIONS (8)
  - Angioedema [Recovering/Resolving]
  - Drug ineffective [Unknown]
  - Nausea [Recovering/Resolving]
  - Vomiting [Recovering/Resolving]
  - Flushing [Recovering/Resolving]
  - Dysphagia [Recovering/Resolving]
  - Urticaria [Recovering/Resolving]
  - Pruritus [Recovering/Resolving]
